FAERS Safety Report 6124517-7 (Version None)
Quarter: 2009Q1

REPORT INFORMATION
  Report Type: 
  Country: None (occurrence: None)
  Receive Date: 20090319
  Receipt Date: 20090310
  Transmission Date: 20090719
  Serious: Yes (Hospitalization, Other)
  Sender: FDA-Public Use
  Company Number: US-ELI_LILLY_AND_COMPANY-US200903002856

PATIENT
  Age: 59 Year
  Sex: Male

DRUGS (4)
  1. CIALIS [Suspect]
     Indication: ERECTILE DYSFUNCTION
     Dosage: 10 MG, 2/D
     Route: 048
  2. BYSTOLIC [Concomitant]
     Indication: HYPERTENSION
     Dosage: 10 MG, 2/D
     Route: 065
     Dates: start: 20090225
  3. AVALIDE [Concomitant]
     Dosage: UNK, UNKNOWN
     Route: 065
  4. CARDURA [Concomitant]
     Dosage: UNK, UNKNOWN
     Route: 065

REACTIONS (2)
  - DRUG INTERACTION [None]
  - PULMONARY OEDEMA [None]
